FAERS Safety Report 5620153-7 (Version None)
Quarter: 2008Q1

REPORT INFORMATION
  Report Type: 
  Country: None (occurrence: None)
  Receive Date: 20080208
  Receipt Date: 20080201
  Transmission Date: 20080703
  Serious: Yes (Hospitalization)
  Sender: FDA-Public Use
  Company Number: US-AVENTIS-200810699US

PATIENT
  Age: 23 Year
  Sex: Female

DRUGS (4)
  1. LANTUS [Suspect]
     Route: 058
     Dates: start: 20080129, end: 20080129
  2. LANTUS [Suspect]
     Route: 058
     Dates: start: 20070701
  3. NOVOLOG [Suspect]
     Dosage: DOSE: UNKNOWN, WITH MEALS
     Route: 051
  4. NOVOLOG [Suspect]
     Dosage: DOSE: 1,000
     Route: 051
     Dates: start: 20080129, end: 20080129

REACTIONS (3)
  - HYPOGLYCAEMIA [None]
  - INTENTIONAL OVERDOSE [None]
  - SUICIDE ATTEMPT [None]
